FAERS Safety Report 18863903 (Version 3)
Quarter: 2021Q3

REPORT INFORMATION
  Report Type: Spontaneous
  Country: CA (occurrence: CA)
  Receive Date: 20210209
  Receipt Date: 20210921
  Transmission Date: 20211014
  Serious: Yes (Other)
  Sender: FDA-Public Use
  Company Number: CA-CELLTRION INC.-2020CA026381

PATIENT

DRUGS (10)
  1. INFLECTRA [Suspect]
     Active Substance: INFLIXIMAB-DYYB
     Dosage: 300 MG (EVERY 8 WEEKS)
     Route: 042
     Dates: start: 20210521
  2. INFLECTRA [Suspect]
     Active Substance: INFLIXIMAB-DYYB
     Dosage: 300 MG (EVERY 8 WEEKS)
     Route: 042
     Dates: start: 20210716
  3. BENADRYL [Concomitant]
     Active Substance: DIPHENHYDRAMINE HYDROCHLORIDE
     Dosage: UNK
     Dates: start: 20210521, end: 20210521
  4. ROSUVASTATIN. [Concomitant]
     Active Substance: ROSUVASTATIN
     Dosage: UNK
     Route: 065
  5. INFLECTRA [Suspect]
     Active Substance: INFLIXIMAB-DYYB
     Dosage: 300 MG (EVERY 8 WEEKS)
     Route: 042
     Dates: start: 20210326
  6. APO?HYDRO [Concomitant]
     Active Substance: HYDROCHLOROTHIAZIDE
     Dosage: UNK
     Route: 065
  7. DIPHENHYDRAMINE. [Concomitant]
     Active Substance: DIPHENHYDRAMINE
     Indication: PREMEDICATION
     Dosage: 25 MG
     Dates: start: 20200818, end: 20200818
  8. INFLECTRA [Suspect]
     Active Substance: INFLIXIMAB-DYYB
     Indication: RHEUMATOID ARTHRITIS
     Dosage: 300 MG (EVERY 8 WEEKS)
     Route: 042
     Dates: start: 20200818
  9. INFLECTRA [Suspect]
     Active Substance: INFLIXIMAB-DYYB
     Dosage: 300 MG (EVERY 8 WEEKS)
     Route: 042
     Dates: start: 20210910
  10. INFLECTRA [Suspect]
     Active Substance: INFLIXIMAB-DYYB
     Dosage: 300 MG (EVERY 8 WEEKS)
     Route: 042
     Dates: start: 20210716

REACTIONS (6)
  - Intentional product use issue [Unknown]
  - Blood pressure increased [Unknown]
  - Body temperature decreased [Unknown]
  - Cataract [Unknown]
  - Off label use [Unknown]
  - Muscle spasms [Unknown]

NARRATIVE: CASE EVENT DATE: 20200818
